FAERS Safety Report 8890628 (Version 2)
Quarter: 2013Q1

REPORT INFORMATION
  Report Type: Spontaneous
  Country: US (occurrence: US)
  Receive Date: 20121107
  Receipt Date: 20130131
  Transmission Date: 20140127
  Serious: Yes (Hospitalization)
  Sender: FDA-Public Use
  Company Number: PHEH2012US021786

PATIENT
  Age: 81 Year
  Sex: Male

DRUGS (11)
  1. EXJADE [Suspect]
     Indication: IRON METABOLISM DISORDER
     Dosage: 3000 MG, QD
     Route: 048
  2. EXJADE [Suspect]
     Indication: IRON OVERLOAD
     Dosage: 3000 MG, QD
     Route: 048
     Dates: start: 201207
  3. ARANESP [Concomitant]
     Indication: ANAEMIA
     Dosage: 300 MG, UNK
     Route: 058
  4. CARDIZEM CD [Concomitant]
     Dosage: 180 MG, BID
     Route: 048
  5. VITAMIN D2 [Concomitant]
     Dosage: 50000 U, WEEKLY
  6. LASIX [Concomitant]
     Dosage: 20 MG, DAILY
     Route: 048
  7. INSULIN [Concomitant]
  8. ALDACTONE [Concomitant]
     Dosage: 25 MG, BID
  9. PROTONIX [Concomitant]
     Dosage: 40 MG, DAILY
     Route: 048
  10. COUMARIN [Concomitant]
     Dosage: 7 MG, DAILY
  11. VENTOLIN [Concomitant]
     Dosage: 0.04 MG, (1-2 PUFFS)

REACTIONS (8)
  - Pneumonia [Unknown]
  - Asthenia [Unknown]
  - Hyperkalaemia [Unknown]
  - Pleural effusion [Unknown]
  - Cardiomegaly [Unknown]
  - Lung infiltration [Unknown]
  - Confusional state [Unknown]
  - Haemoglobin decreased [Unknown]
